FAERS Safety Report 13342041 (Version 3)
Quarter: 2020Q2

REPORT INFORMATION
  Report Type: Spontaneous
  Country: US (occurrence: US)
  Receive Date: 20170316
  Receipt Date: 20200402
  Transmission Date: 20200713
  Serious: No
  Sender: FDA-Public Use
  Company Number: US-ROCHE-1763412

PATIENT
  Age: 77 Year
  Sex: Male

DRUGS (13)
  1. NIACIN. [Concomitant]
     Active Substance: NIACIN
  2. FOLIC ACID. [Concomitant]
     Active Substance: FOLIC ACID
     Route: 065
  3. ERIVEDGE [Suspect]
     Active Substance: VISMODEGIB
     Route: 048
     Dates: start: 20170920
  4. CLARITINE [Concomitant]
     Active Substance: LORATADINE
     Route: 065
  5. LEVOTHYROXINE. [Concomitant]
     Active Substance: LEVOTHYROXINE
     Indication: ARTHRITIS
     Route: 065
  6. CARVEDILOL. [Concomitant]
     Active Substance: CARVEDILOL
     Indication: HYPERTENSION
     Dosage: 1-2 TIMES PER DAY
     Route: 065
  7. ASPIRIN [ACETYLSALICYLIC ACID] [Concomitant]
     Active Substance: ASPIRIN
     Indication: HYPERTENSION
     Dosage: THREE TIMES PER WEEK, (MON/WED/FRI),
     Route: 065
  8. ERIVEDGE [Suspect]
     Active Substance: VISMODEGIB
     Dosage: SWALLOW WHOLE CAPS
     Route: 048
     Dates: start: 20170901
  9. FISH OIL [Concomitant]
     Active Substance: FISH OIL
     Route: 065
  10. ERIVEDGE [Suspect]
     Active Substance: VISMODEGIB
     Route: 048
     Dates: start: 20151217, end: 201705
  11. METHOTREXATE. [Concomitant]
     Active Substance: METHOTREXATE
     Indication: ARTHRITIS
     Dosage: 6 PILLS, AT ONE TIME, ONCE PER WEEK
     Route: 065
  12. FISH OIL [Concomitant]
     Active Substance: FISH OIL
     Route: 065
  13. ERIVEDGE [Suspect]
     Active Substance: VISMODEGIB
     Indication: BASAL CELL CARCINOMA
     Route: 048
     Dates: start: 2016

REACTIONS (11)
  - Alopecia [Not Recovered/Not Resolved]
  - Nausea [Not Recovered/Not Resolved]
  - Herpes zoster [Recovering/Resolving]
  - Weight decreased [Not Recovered/Not Resolved]
  - Malaise [Unknown]
  - Constipation [Not Recovered/Not Resolved]
  - Muscle spasms [Not Recovered/Not Resolved]
  - Drug ineffective [Unknown]
  - Ageusia [Not Recovered/Not Resolved]
  - Muscle spasms [Unknown]
  - Abdominal pain upper [Not Recovered/Not Resolved]

NARRATIVE: CASE EVENT DATE: 2016
